FAERS Safety Report 7681209-0 (Version None)
Quarter: 2011Q3

REPORT INFORMATION
  Report Type: 
  Country: None (occurrence: None)
  Receive Date: 20110812
  Receipt Date: 20110802
  Transmission Date: 20111222
  Serious: Yes (Hospitalization, Disabling)
  Sender: FDA-Public Use
  Company Number: US-ELI_LILLY_AND_COMPANY-US201108002547

PATIENT
  Age: 70 Year
  Sex: Female

DRUGS (4)
  1. HUMULIN N [Suspect]
     Dosage: 40 U, EACH EVENING
     Dates: start: 19910101
  2. HUMULIN R [Suspect]
     Indication: TYPE 2 DIABETES MELLITUS
     Dosage: 15 U, EACH MORNING
     Dates: start: 19910101
  3. HUMULIN N [Suspect]
     Indication: TYPE 2 DIABETES MELLITUS
     Dosage: 40 U, EACH MORNING
     Dates: start: 19910101
  4. HUMULIN R [Suspect]
     Dosage: 15 U, EACH EVENING
     Dates: start: 19910101

REACTIONS (5)
  - ARTHRITIS [None]
  - SPINAL COLUMN STENOSIS [None]
  - PRURITUS [None]
  - MOBILITY DECREASED [None]
  - BURNS THIRD DEGREE [None]
